FAERS Safety Report 9459493 (Version 2)
Quarter: 2013Q3

REPORT INFORMATION
  Report Type: Spontaneous
  Country: US (occurrence: US)
  Receive Date: 20130815
  Receipt Date: 20130903
  Transmission Date: 20140515
  Serious: No
  Sender: FDA-Public Use
  Company Number: US-PFIZER INC-2013236843

PATIENT
  Age: 71 Year
  Sex: Female
  Weight: 73.92 kg

DRUGS (1)
  1. DOXAZOSIN MESILATE [Suspect]
     Indication: HYPERTENSION
     Dosage: 2 MG, DAILY
     Route: 048

REACTIONS (1)
  - Drug ineffective [Unknown]
